FAERS Safety Report 5106095-4 (Version None)
Quarter: 2006Q3

REPORT INFORMATION
  Report Type: 
  Country: None (occurrence: None)
  Receive Date: 20060912
  Receipt Date: 20060825
  Transmission Date: 20061208
  Serious: Yes (Death)
  Sender: FDA-Public Use
  Company Number: 2006-03-0493

PATIENT
  Age: 59 Year
  Sex: Male
  Weight: 81.1939 kg

DRUGS (11)
  1. PEG-INTRON [Suspect]
     Indication: HEPATITIS C
     Dosage: 41.15 MCG;QW;SC
     Route: 058
     Dates: start: 20040131, end: 20060220
  2. CHOLESTYRAMINE [Concomitant]
  3. BENADRYL [Concomitant]
  4. CLONIDINE [Concomitant]
  5. MAXZIDE [Concomitant]
  6. PROCARDIA XL [Concomitant]
  7. ULTRAM [Concomitant]
  8. LOPID [Concomitant]
  9. LEVOTHYROXINE SODIUM [Concomitant]
  10. ACETAMINOPHEN [Concomitant]
  11. ATARAX [Concomitant]

REACTIONS (10)
  - ARTERIOSCLEROSIS [None]
  - ARTHRALGIA [None]
  - CONSTIPATION [None]
  - DENTAL CARIES [None]
  - FATIGUE [None]
  - HYPERCHOLESTEROLAEMIA [None]
  - HYPERLIPIDAEMIA [None]
  - HYPOTHYROIDISM [None]
  - PRURITUS [None]
  - PRURITUS GENERALISED [None]
